FAERS Safety Report 16801608 (Version 2)
Quarter: 2020Q3

REPORT INFORMATION
  Report Type: Report from Study
  Country: JP (occurrence: JP)
  Receive Date: 20190912
  Receipt Date: 20200825
  Transmission Date: 20201102
  Serious: Yes (Hospitalization)
  Sender: FDA-Public Use
  Company Number: JP-BIOGEN-2019BI00686972

PATIENT
  Age: 6 Year
  Sex: Female

DRUGS (12)
  1. SPINRAZA [Suspect]
     Active Substance: NUSINERSEN
     Indication: SPINAL MUSCULAR ATROPHY
     Route: 050
     Dates: start: 20180509, end: 20180509
  2. MIDAZOLAM. [Interacting]
     Active Substance: MIDAZOLAM
     Route: 050
     Dates: start: 20180808, end: 20180808
  3. SPINRAZA [Interacting]
     Active Substance: NUSINERSEN
     Route: 050
     Dates: start: 20190130, end: 20190130
  4. SPINRAZA [Interacting]
     Active Substance: NUSINERSEN
     Route: 050
     Dates: start: 20180808, end: 20180808
  5. MIDAZOLAM. [Interacting]
     Active Substance: MIDAZOLAM
     Route: 050
     Dates: start: 20180606, end: 20180606
  6. MIDAZOLAM. [Interacting]
     Active Substance: MIDAZOLAM
     Route: 050
     Dates: start: 20200205
  7. SPINRAZA [Interacting]
     Active Substance: NUSINERSEN
     Route: 050
     Dates: start: 20180606, end: 20180606
  8. SPINRAZA [Interacting]
     Active Substance: NUSINERSEN
     Route: 050
     Dates: start: 20200205
  9. MIDAZOLAM. [Interacting]
     Active Substance: MIDAZOLAM
     Route: 050
     Dates: start: 20190130, end: 20190130
  10. MIDAZOLAM. [Interacting]
     Active Substance: MIDAZOLAM
     Route: 050
     Dates: start: 20190731, end: 20190731
  11. SPINRAZA [Interacting]
     Active Substance: NUSINERSEN
     Route: 050
     Dates: start: 20190731, end: 20190731
  12. MIDAZOLAM. [Interacting]
     Active Substance: MIDAZOLAM
     Indication: ANAESTHESIA PROCEDURE
     Route: 050
     Dates: start: 20180509, end: 20180509

REACTIONS (3)
  - Pyrexia [Recovered/Resolved]
  - Pneumonia aspiration [Recovered/Resolved]
  - Drug interaction [Unknown]

NARRATIVE: CASE EVENT DATE: 20180607
